FAERS Safety Report 25902691 (Version 1)
Quarter: 2025Q4

REPORT INFORMATION
  Report Type: Report from Study
  Country: CA (occurrence: CA)
  Receive Date: 20251009
  Receipt Date: 20251009
  Transmission Date: 20260119
  Serious: Yes (Death, Hospitalization)
  Sender: HLS THERAPEUTICS
  Company Number: CA-HLS-202502557

PATIENT
  Age: 70 Year
  Sex: Female

DRUGS (1)
  1. CLOZARIL [Suspect]
     Active Substance: CLOZAPINE
     Indication: Product used for unknown indication
     Route: 048
     Dates: start: 20050401

REACTIONS (2)
  - Death [Fatal]
  - Lung disorder [Fatal]

NARRATIVE: CASE EVENT DATE: 20250916
